FAERS Safety Report 6967691-2 (Version None)
Quarter: 2010Q3

REPORT INFORMATION
  Report Type: 
  Country: None (occurrence: None)
  Receive Date: 20100907
  Receipt Date: 20100824
  Transmission Date: 20110219
  Serious: No
  Sender: FDA-Public Use
  Company Number: US-PFIZER INC-2010107151

PATIENT
  Sex: Female
  Weight: 70.295 kg

DRUGS (6)
  1. TOVIAZ [Suspect]
     Indication: HYPERTONIC BLADDER
     Dosage: 4 MG, 1X/DAY
     Route: 048
     Dates: start: 20100701
  2. METOPROLOL [Concomitant]
     Dosage: UNK
  3. COZAAR [Concomitant]
     Dosage: UNK
  4. AMLODIPINE [Concomitant]
     Dosage: 10 MG, UNK
  5. SIMVASTATIN [Concomitant]
     Dosage: 40 MG, UNK
  6. WARFARIN [Concomitant]
     Indication: THROMBOSIS
     Dosage: UNK

REACTIONS (2)
  - DRUG INEFFECTIVE [None]
  - INSOMNIA [None]
